FAERS Safety Report 6431518-8 (Version None)
Quarter: 2009Q4

REPORT INFORMATION
  Report Type: 
  Country: None (occurrence: None)
  Receive Date: 20091103
  Receipt Date: 20091019
  Transmission Date: 20100525
  Serious: Yes (Hospitalization)
  Sender: FDA-Public Use
  Company Number: AUR-APL-2009-00976

PATIENT
  Age: 38 Year
  Sex: Female

DRUGS (3)
  1. PAROXETINE HCL [Suspect]
     Dosage: 1.8G, ONCE
  2. DIPHENHYDRAMINE HCL [Suspect]
     Dosage: 400MG, ONCE
  3. TEMAZEPAM [Suspect]
     Dosage: 280MG-ONCE

REACTIONS (17)
  - ACCIDENT [None]
  - AGITATION [None]
  - CLONUS [None]
  - COMA SCALE ABNORMAL [None]
  - CONFUSIONAL STATE [None]
  - FLUSHING [None]
  - GRAND MAL CONVULSION [None]
  - HYPERHIDROSIS [None]
  - HYPERSENSITIVITY [None]
  - HYPERTONIA [None]
  - MULTIPLE DRUG OVERDOSE [None]
  - MYDRIASIS [None]
  - OBSTRUCTIVE AIRWAYS DISORDER [None]
  - PYREXIA [None]
  - SOMNOLENCE [None]
  - TACHYCARDIA [None]
  - VOMITING [None]
